FAERS Safety Report 25919228 (Version 2)
Quarter: 2025Q4

REPORT INFORMATION
  Report Type: Spontaneous
  Country: US (occurrence: US)
  Receive Date: 20251014
  Receipt Date: 20251014
  Transmission Date: 20260117
  Serious: Yes (Other)
  Sender: IPSEN BIOPHARMACEUTICALS, INC.
  Company Number: US-IPSEN Group, Research and Development-2025-25360

PATIENT
  Sex: Female

DRUGS (4)
  1. IQIRVO [Suspect]
     Active Substance: ELAFIBRANOR
     Indication: Primary biliary cholangitis
     Route: 048
     Dates: start: 202501
  2. TRINTELLIX [Concomitant]
     Active Substance: VORTIOXETINE HYDROBROMIDE
  3. URSODIOL [Concomitant]
     Active Substance: URSODIOL
  4. CALCIUM-VIT D3 [Concomitant]

REACTIONS (3)
  - Pneumonitis [Unknown]
  - Dyspnoea [Unknown]
  - Hypersensitivity [Unknown]
